FAERS Safety Report 18189533 (Version 1)
Quarter: 2020Q3

REPORT INFORMATION
  Report Type: Spontaneous
  Country: FR (occurrence: FR)
  Receive Date: 20200824
  Receipt Date: 20200824
  Transmission Date: 20201103
  Serious: Yes (Hospitalization)
  Sender: FDA-Public Use
  Company Number: FR-BAUSCH-BL-2020-023540

PATIENT
  Age: 75 Year
  Sex: Female

DRUGS (2)
  1. TIBERAL [Suspect]
     Active Substance: ORNIDAZOLE
     Indication: INFECTION
     Route: 042
     Dates: start: 20200707, end: 20200709
  2. METFORMIN [Suspect]
     Active Substance: METFORMIN HYDROCHLORIDE
     Indication: DIABETES MELLITUS
     Dosage: BASE
     Route: 048
     Dates: start: 20200707, end: 20200707

REACTIONS (1)
  - Metabolic acidosis [Recovered/Resolved]

NARRATIVE: CASE EVENT DATE: 20200709
